FAERS Safety Report 6953148-1 (Version None)
Quarter: 2010Q3

REPORT INFORMATION
  Report Type: 
  Country: None (occurrence: None)
  Receive Date: 20100829
  Receipt Date: 20100527
  Transmission Date: 20110219
  Serious: No
  Sender: FDA-Public Use
  Company Number: US-ABBOTT-10P-163-0648118-00

PATIENT

DRUGS (2)
  1. NIASPAN [Suspect]
     Indication: PRODUCT USED FOR UNKNOWN INDICATION
     Dates: start: 20080101
  2. NIASPAN [Suspect]
     Dates: start: 20100501

REACTIONS (4)
  - DYSPEPSIA [None]
  - HEPATIC ENZYME INCREASED [None]
  - NAUSEA [None]
  - VOMITING [None]
